FAERS Safety Report 16033018 (Version 1)
Quarter: 2019Q1

REPORT INFORMATION
  Report Type: Spontaneous
  Country: US (occurrence: US)
  Receive Date: 20190305
  Receipt Date: 20190305
  Transmission Date: 20190418
  Serious: No
  Sender: FDA-Public Use
  Company Number: US-IMPAX LABORATORIES, LLC-2018-IPXL-02152

PATIENT
  Age: 76 Year
  Sex: Male

DRUGS (8)
  1. NEUPRO [Concomitant]
     Active Substance: ROTIGOTINE
     Dosage: 1 MG, UNK
     Route: 065
     Dates: start: 20180213, end: 20180623
  2. BUPROPION. [Concomitant]
     Active Substance: BUPROPION
     Indication: PRODUCT USED FOR UNKNOWN INDICATION
     Dosage: UNK
     Route: 065
     Dates: start: 20141001
  3. SERTRALINE [Concomitant]
     Active Substance: SERTRALINE HYDROCHLORIDE
     Indication: PRODUCT USED FOR UNKNOWN INDICATION
     Dosage: 50 MG, UNK
     Route: 065
     Dates: start: 20130828
  4. KLONOPIN [Concomitant]
     Active Substance: CLONAZEPAM
     Indication: PRODUCT USED FOR UNKNOWN INDICATION
     Dosage: AT BED TIME
     Route: 065
  5. RYTARY [Suspect]
     Active Substance: CARBIDOPA\LEVODOPA
     Dosage: 31.25/145 MG, 3 CAPSULES 4 TIMES A DAY (TID)
     Route: 065
     Dates: start: 20180623
  6. NEUPRO [Concomitant]
     Active Substance: ROTIGOTINE
     Indication: PRODUCT USED FOR UNKNOWN INDICATION
     Dosage: UNK
     Route: 065
     Dates: start: 20141124
  7. CLONAZEPAM. [Concomitant]
     Active Substance: CLONAZEPAM
     Indication: PRODUCT USED FOR UNKNOWN INDICATION
     Dosage: 0.250 MG, UNK
     Route: 065
     Dates: start: 20161122
  8. RYTARY [Suspect]
     Active Substance: CARBIDOPA\LEVODOPA
     Indication: PARKINSON^S DISEASE
     Dosage: 23.75/95 MG, 4 CAPSULES 3 TIMES A DAY (TID)
     Route: 065
     Dates: start: 20170531, end: 201806

REACTIONS (4)
  - Anxiety [Recovering/Resolving]
  - Hallucination, auditory [Unknown]
  - Fear [Unknown]
  - Hallucination, visual [Not Recovered/Not Resolved]
